FAERS Safety Report 8311154-9 (Version None)
Quarter: 2012Q2

REPORT INFORMATION
  Report Type: 
  Country: None (occurrence: None)
  Receive Date: 20120425
  Receipt Date: 20120112
  Transmission Date: 20120825
  Serious: No
  Sender: FDA-Public Use
  Company Number: US-MYLANLABS-2011S1023204

PATIENT
  Age: 63 Year
  Sex: Female

DRUGS (7)
  1. LANTUS [Concomitant]
  2. VYTORIN [Concomitant]
  3. LORAZEPAM [Suspect]
     Route: 048
     Dates: start: 20111001, end: 20111105
  4. LORAZEPAM [Suspect]
     Route: 048
     Dates: start: 20111001
  5. LORAZEPAM [Suspect]
     Route: 048
     Dates: start: 20100101, end: 20111001
  6. NOVOLOG [Concomitant]
  7. PROTONIX [Concomitant]

REACTIONS (2)
  - INCORRECT DOSE ADMINISTERED [None]
  - DRUG INEFFECTIVE [None]
